FAERS Safety Report 17639587 (Version 1)
Quarter: 2020Q2

REPORT INFORMATION
  Report Type: Spontaneous
  Country: CH (occurrence: CH)
  Receive Date: 20200407
  Receipt Date: 20200407
  Transmission Date: 20200713
  Serious: Yes (Other)
  Sender: FDA-Public Use
  Company Number: CH-009507513-2004CHE001369

PATIENT
  Age: 39 Year
  Sex: Male

DRUGS (2)
  1. FINASTERIDE. [Suspect]
     Active Substance: FINASTERIDE
     Indication: ANDROGENETIC ALOPECIA
     Dosage: 1 MILLIGRAM, QD
     Route: 048
     Dates: start: 1998
  2. FINASTERIDE. [Suspect]
     Active Substance: FINASTERIDE
     Dosage: 1 MILLIGRAM, QD
     Route: 048
     Dates: end: 201312

REACTIONS (20)
  - Panic attack [Unknown]
  - Urine flow decreased [Unknown]
  - Headache [Unknown]
  - Toothache [Unknown]
  - Depression [Unknown]
  - Loss of libido [Unknown]
  - Head discomfort [Unknown]
  - Tinnitus [Unknown]
  - Suicidal ideation [Unknown]
  - Psychophysiologic insomnia [Unknown]
  - Gingival recession [Unknown]
  - Sensory disturbance [Unknown]
  - Disturbance in attention [Unknown]
  - Anxiety [Unknown]
  - Dysuria [Unknown]
  - Pelvic pain [Unknown]
  - Penis disorder [Unknown]
  - Cognitive disorder [Unknown]
  - Emotional disorder [Unknown]
  - Testicular pain [Unknown]

NARRATIVE: CASE EVENT DATE: 2008
